FAERS Safety Report 25230952 (Version 1)
Quarter: 2025Q2

REPORT INFORMATION
  Report Type: Spontaneous
  Country: IT (occurrence: IT)
  Receive Date: 20250423
  Receipt Date: 20250423
  Transmission Date: 20250717
  Serious: Yes (Hospitalization, Other)
  Sender: ARGENX BVBA
  Company Number: IT-ARGENX-2025-ARGX-IT004995

PATIENT

DRUGS (1)
  1. VYVGART [Suspect]
     Active Substance: EFGARTIGIMOD ALFA-FCAB
     Indication: Myasthenia gravis
     Route: 065
     Dates: start: 20250211, end: 20250304

REACTIONS (2)
  - Parainfluenzae virus infection [Recovered/Resolved]
  - Pneumonia bacterial [Recovered/Resolved]
